FAERS Safety Report 15011032 (Version 1)
Quarter: 2018Q2

REPORT INFORMATION
  Report Type: Report from Study
  Country: US (occurrence: US)
  Receive Date: 20180614
  Receipt Date: 20180614
  Transmission Date: 20180711
  Serious: Yes (Hospitalization, Other)
  Sender: FDA-Public Use
  Company Number: US-GILEAD-2018-0338315

PATIENT
  Age: 52 Year
  Sex: Male

DRUGS (6)
  1. PANTOPRAZOLE SODIUM. [Concomitant]
     Active Substance: PANTOPRAZOLE SODIUM
  2. METOPROLOL SUCCINATE. [Concomitant]
     Active Substance: METOPROLOL SUCCINATE
  3. MULTI VITAMINS + MINERALS [Concomitant]
  4. PRAVACHOL [Concomitant]
     Active Substance: PRAVASTATIN SODIUM
  5. LEDIPASVIR/SOFOSBUVIR [Suspect]
     Active Substance: LEDIPASVIR\SOFOSBUVIR
     Indication: CHRONIC HEPATITIS C
     Dosage: 1 DF, QD
     Route: 065
     Dates: start: 20180403, end: 20180528
  6. GABAPENTIN. [Concomitant]
     Active Substance: GABAPENTIN

REACTIONS (7)
  - Haematochezia [Unknown]
  - Product use issue [Recovered/Resolved]
  - Weight decreased [Unknown]
  - Diarrhoea haemorrhagic [Unknown]
  - Diarrhoea [Recovering/Resolving]
  - Fluid retention [Unknown]
  - Night sweats [Recovering/Resolving]

NARRATIVE: CASE EVENT DATE: 20180529
